FAERS Safety Report 21482920 (Version 1)
Quarter: 2022Q4

REPORT INFORMATION
  Report Type: Spontaneous
  Country: CN (occurrence: CN)
  Receive Date: 20221020
  Receipt Date: 20221020
  Transmission Date: 20230113
  Serious: Yes (Death, Hospitalization, Other)
  Sender: FDA-Public Use
  Company Number: None

PATIENT
  Age: 61 Year
  Sex: Female
  Weight: 65 kg

DRUGS (7)
  1. LINEZOLID [Suspect]
     Active Substance: LINEZOLID
     Indication: Enterococcal infection
     Dosage: 600 MILLIGRAM, BID (EVERY 12 HOURS)
     Route: 042
  2. LINEZOLID [Suspect]
     Active Substance: LINEZOLID
     Indication: Pyelonephritis acute
  3. DAPAGLIFLOZIN [Suspect]
     Active Substance: DAPAGLIFLOZIN
     Indication: Type 2 diabetes mellitus
     Dosage: UNK
     Route: 065
  4. MILRINONE [Concomitant]
     Active Substance: MILRINONE
     Indication: Product used for unknown indication
     Dosage: UNK
     Route: 065
  5. METOPROLOL [Concomitant]
     Active Substance: METOPROLOL
     Indication: Product used for unknown indication
     Dosage: 47.5 MILLIGRAM, QD (EVERY 1 DAY)
     Route: 065
  6. TORSEMIDE [Concomitant]
     Active Substance: TORSEMIDE
     Indication: Product used for unknown indication
     Dosage: 20 MILLIGRAM, QD (EVERY 1 DAY)
     Route: 042
  7. VALSARTAN [Concomitant]
     Active Substance: VALSARTAN
     Indication: Hypertension
     Dosage: 80 MILLIGRAM, QD (EVERY 1 DAY)
     Route: 065

REACTIONS (3)
  - Myelosuppression [Fatal]
  - Hyponatraemia [Unknown]
  - Drug interaction [Fatal]
